FAERS Safety Report 6287576-7 (Version None)
Quarter: 2009Q3

REPORT INFORMATION
  Report Type: 
  Country: None (occurrence: None)
  Receive Date: 20090727
  Receipt Date: 20090720
  Transmission Date: 20100115
  Serious: Yes (Hospitalization)
  Sender: FDA-Public Use
  Company Number: 09US002641

PATIENT
  Age: 80 Year
  Sex: Male
  Weight: 77.1 kg

DRUGS (8)
  1. ANTI NAUSEA LIQ 291 (GLUCOSE 374 MG/ML, PHOSPHORIC ACID 4.3 MG/ML) [Suspect]
     Indication: VOMITING
     Dosage: 1 TEASPOON /INTERVALS OR TIMES FOR TOTAL OF 2 OZ OVER 2 DAYS, ORAL
     Route: 048
  2. FUROSEMIDE (FUROSEMIDE SODIUM) [Concomitant]
  3. COREG [Concomitant]
  4. AMIODARONE HCL [Concomitant]
  5. SIMVASTATIN [Concomitant]
  6. ASPIRIN [Concomitant]
  7. LISINOPRIL (LISINOPRIL DIHYDRATE ) [Concomitant]
  8. FLOMAX (MORNIFLUMATE) [Concomitant]

REACTIONS (5)
  - CONDITION AGGRAVATED [None]
  - DRUG INEFFECTIVE [None]
  - INCORRECT DOSE ADMINISTERED [None]
  - INTESTINAL OBSTRUCTION [None]
  - VOMITING [None]
